FAERS Safety Report 16968813 (Version 3)
Quarter: 2019Q4

REPORT INFORMATION
  Report Type: Spontaneous
  Country: CA (occurrence: CA)
  Receive Date: 20191029
  Receipt Date: 20191115
  Transmission Date: 20200122
  Serious: Yes (Other)
  Sender: FDA-Public Use
  Company Number: CA-CELLTRION INC.-2019CA025219

PATIENT

DRUGS (6)
  1. M B6 [Concomitant]
     Dosage: 25 MG 2 TABLETS DAILY FOR 9 MONTHS
     Route: 065
     Dates: start: 2019
  2. INFLECTRA [Suspect]
     Active Substance: INFLIXIMAB-DYYB
     Indication: CROHN^S DISEASE
     Dosage: 360 MG, AT 0, 2, 6 WEEKS, THEN EVERY 8 WEEKS
     Route: 042
     Dates: start: 20190904, end: 20191016
  3. M B6 [Concomitant]
     Indication: LATENT TUBERCULOSIS
     Dosage: 50 MG, DAILY (TWO TABLETS FOR 9 MONTHS)
     Dates: start: 2019
  4. INFLECTRA [Suspect]
     Active Substance: INFLIXIMAB-DYYB
     Dosage: 360 MG, AT 0, 2, 6 WEEKS, THEN EVERY 8 WEEKS
     Route: 042
     Dates: start: 20190918
  5. INFLECTRA [Suspect]
     Active Substance: INFLIXIMAB-DYYB
     Dosage: 360 MG, AT 0, 2, 6 WEEKS, THEN EVERY 8 WEEKS
     Route: 042
     Dates: start: 20191016
  6. ISONIAZID. [Concomitant]
     Active Substance: ISONIAZID
     Indication: LATENT TUBERCULOSIS
     Dosage: 300 MG, DAILY (FOR 9 MONTHS)
     Route: 065
     Dates: start: 2019

REACTIONS (7)
  - Jaundice [Unknown]
  - Haematochezia [Not Recovered/Not Resolved]
  - Contraindicated product administered [Unknown]
  - Headache [Unknown]
  - Diarrhoea [Unknown]
  - Nasopharyngitis [Unknown]
  - Cough [Unknown]

NARRATIVE: CASE EVENT DATE: 201909
